FAERS Safety Report 5274552-6 (Version None)
Quarter: 2007Q1

REPORT INFORMATION
  Report Type: 
  Country: None (occurrence: None)
  Receive Date: 20070323
  Receipt Date: 20070314
  Transmission Date: 20070707
  Serious: Yes (Other)
  Sender: FDA-Public Use
  Company Number: US-PFIZER INC-2007020298

PATIENT
  Sex: Female
  Weight: 49 kg

DRUGS (18)
  1. CELEBREX [Suspect]
  2. NEURONTIN [Suspect]
     Indication: CONVULSION
  3. NEURONTIN [Suspect]
     Indication: MIGRAINE
  4. ZOLOFT [Suspect]
     Indication: BIPOLAR DISORDER
  5. PREDNISONE [Suspect]
  6. IMITREX [Suspect]
  7. ALL OTHER THERAPEUTIC PRODUCTS [Suspect]
     Indication: MIGRAINE
     Route: 042
  8. DEPAKOTE [Concomitant]
  9. VICODIN ES [Concomitant]
  10. ADVAIR DISKUS 100/50 [Concomitant]
  11. TIZANIDINE HCL [Concomitant]
  12. CLONAZEPAM [Concomitant]
  13. FIORICET [Concomitant]
  14. AMITRIPTYLINE HCL [Concomitant]
  15. MULTI-VITAMINS [Concomitant]
  16. CALCIUM WITH VITAMIN D [Concomitant]
  17. ASCORBIC ACID [Concomitant]
  18. VITAMIN E [Concomitant]

REACTIONS (11)
  - AGITATION [None]
  - ANXIETY [None]
  - BIPOLAR DISORDER [None]
  - CHRONIC OBSTRUCTIVE PULMONARY DISEASE [None]
  - FEELING ABNORMAL [None]
  - HYPERTENSION [None]
  - OSTEOPOROSIS [None]
  - PALPITATIONS [None]
  - SINUS DISORDER [None]
  - TREMOR [None]
  - VOMITING [None]
